FAERS Safety Report 7776445-9 (Version None)
Quarter: 2011Q3

REPORT INFORMATION
  Report Type: 
  Country: None (occurrence: None)
  Receive Date: 20110926
  Receipt Date: 20110915
  Transmission Date: 20111222
  Serious: Yes (Hospitalization)
  Sender: FDA-Public Use
  Company Number: US-JNJFOC-20110407519

PATIENT
  Sex: Male
  Weight: 77.7 kg

DRUGS (20)
  1. GOLIMUMAB [Suspect]
     Indication: RHEUMATOID ARTHRITIS
     Route: 058
     Dates: start: 20101221, end: 20110318
  2. COGENTIN [Concomitant]
     Indication: TREMOR
     Route: 048
     Dates: start: 20090306
  3. KLONOPIN [Concomitant]
     Indication: ANXIETY
     Route: 048
     Dates: start: 20090306
  4. PROZAC [Concomitant]
     Indication: DEPRESSION
     Dates: start: 20110419
  5. HUMALOG [Concomitant]
     Indication: TYPE 1 DIABETES MELLITUS
     Dosage: 7 UNITS
     Route: 058
     Dates: start: 20090122
  6. GOLIMUMAB [Suspect]
     Route: 058
  7. DIOVAN [Concomitant]
     Indication: HYPERTENSION
     Route: 048
     Dates: start: 20101223
  8. PROZAC [Concomitant]
     Dates: start: 20110211, end: 20110418
  9. LANTUS [Concomitant]
     Indication: TYPE 1 DIABETES MELLITUS
     Dates: start: 20100901
  10. INDERAL [Concomitant]
     Indication: TREMOR
     Route: 048
     Dates: start: 20110501
  11. METHOTREXATE [Concomitant]
     Indication: RHEUMATOID ARTHRITIS
     Route: 048
     Dates: start: 20100727
  12. FOLIC ACID [Concomitant]
     Indication: NUTRITIONAL SUPPORT
     Route: 048
     Dates: start: 20100727
  13. HYDROCODONE [Concomitant]
     Indication: RHEUMATOID ARTHRITIS
     Route: 048
     Dates: start: 20091101
  14. ARIPIPRAZOLE [Concomitant]
     Indication: DEPRESSION
     Route: 048
     Dates: start: 20110211
  15. VITAMIN D [Concomitant]
     Indication: NUTRITIONAL SUPPORT
     Route: 048
     Dates: start: 20100916
  16. DEPAKOTE [Concomitant]
     Indication: DEPRESSION
     Route: 048
     Dates: start: 20091002, end: 20110412
  17. PLACEBO [Suspect]
     Indication: RHEUMATOID ARTHRITIS
     Route: 058
     Dates: start: 20101221, end: 20110318
  18. TRAZODONE HYDROCHLORIDE [Concomitant]
     Indication: INSOMNIA
     Route: 048
     Dates: start: 20110211
  19. TRAZODONE HYDROCHLORIDE [Concomitant]
     Indication: DEPRESSION
     Route: 048
     Dates: start: 20110211
  20. CYMBALTA [Concomitant]
     Indication: DEPRESSION
     Route: 048
     Dates: start: 20070401

REACTIONS (3)
  - RENAL FAILURE ACUTE [None]
  - APPENDICITIS [None]
  - DIABETIC KETOACIDOSIS [None]
